FAERS Safety Report 7145883-X (Version None)
Quarter: 2010Q4

REPORT INFORMATION
  Report Type: 
  Country: None (occurrence: None)
  Receive Date: 20101208
  Receipt Date: 20101203
  Transmission Date: 20110411
  Serious: Yes (Hospitalization)
  Sender: FDA-Public Use
  Company Number: B0687844A

PATIENT
  Sex: Male

DRUGS (1)
  1. AUGMENTIN [Suspect]
     Dosage: 9IUAX PER DAY
     Route: 048
     Dates: start: 20101124, end: 20101126

REACTIONS (2)
  - ERYTHEMA [None]
  - PHARYNGEAL ERYTHEMA [None]
